FAERS Safety Report 5757687-0 (Version None)
Quarter: 2008Q2

REPORT INFORMATION
  Report Type: 
  Country: None (occurrence: None)
  Receive Date: 20080529
  Receipt Date: 20080521
  Transmission Date: 20081010
  Serious: Yes (Other)
  Sender: FDA-Public Use
  Company Number: 2008013524

PATIENT
  Age: 72 Year
  Sex: Female
  Weight: 92 kg

DRUGS (11)
  1. CETIRIZINE HCL [Suspect]
     Dosage: 15 MILLIGRAMS DAILY, ORAL
     Route: 048
  2. CARDIZEM CD [Concomitant]
  3. EPIVIR [Concomitant]
  4. FERROUS GLUCONATE (FERROUS GLUCONATE) [Concomitant]
  5. GLUCOSAMINE (GLUCOSAMINE) [Concomitant]
  6. MOTILIUM [Concomitant]
  7. OMEGA 3 (FISH OIL) [Concomitant]
  8. PANTOLOC ^BYK MADAUS^ (PANTOPRAZOLE) [Concomitant]
  9. SERAX [Concomitant]
  10. ACETAMINOPHEN [Concomitant]
  11. ZYPREXA [Concomitant]

REACTIONS (6)
  - ABDOMINAL PAIN [None]
  - ALANINE AMINOTRANSFERASE INCREASED [None]
  - ASPARTATE AMINOTRANSFERASE INCREASED [None]
  - GAMMA-GLUTAMYLTRANSFERASE INCREASED [None]
  - JAUNDICE [None]
  - VOMITING [None]
